FAERS Safety Report 4669016-4 (Version None)
Quarter: 2005Q2

REPORT INFORMATION
  Report Type: 
  Country: None (occurrence: None)
  Receive Date: 20050523
  Receipt Date: 20041013
  Transmission Date: 20051028
  Serious: Yes (Other)
  Sender: FDA-Public Use
  Company Number: PHBS2004IT13745

PATIENT
  Age: 57 Year
  Sex: Female

DRUGS (2)
  1. ZOMETA [Suspect]
     Indication: NEOPLASM MALIGNANT
     Dosage: 4 MG/CYCLE
     Route: 042
     Dates: start: 20021003, end: 20040919
  2. HERCEPTIN [Concomitant]
     Dosage: 6 MG/KG
     Route: 042

REACTIONS (2)
  - FUNGAL INFECTION [None]
  - OSTEONECROSIS [None]
